FAERS Safety Report 5932602-5 (Version None)
Quarter: 2008Q4

REPORT INFORMATION
  Report Type: 
  Country: None (occurrence: None)
  Receive Date: 20081023
  Receipt Date: 20060404
  Transmission Date: 20090506
  Serious: Yes (Death, Other)
  Sender: FDA-Public Use
  Company Number: 2006AL001978

PATIENT
  Age: 38 Year
  Sex: Female

DRUGS (5)
  1. CITALOPRAM HYDROBROMIDE [Suspect]
     Indication: ANXIETY
     Dosage: 40 MG;QD;PO
     Route: 048
     Dates: start: 20050413
  2. CITALOPRAM HYDROBROMIDE [Suspect]
     Indication: DEPRESSION
     Dosage: 40 MG;QD;PO
     Route: 048
     Dates: start: 20050413
  3. FLUOXETINE [Suspect]
     Indication: ANXIETY
     Dosage: PO
     Route: 048
     Dates: start: 20050522
  4. FLUOXETINE [Suspect]
     Indication: DEPRESSION
     Dosage: PO
     Route: 048
     Dates: start: 20050522
  5. SANDO-K [Concomitant]

REACTIONS (8)
  - BLOOD POTASSIUM DECREASED [None]
  - CARDIAC ARREST [None]
  - GASTRIC HAEMORRHAGE [None]
  - GASTRITIS [None]
  - HEPATIC STEATOSIS [None]
  - HYPERKALAEMIA [None]
  - NAUSEA [None]
  - VOMITING [None]
